FAERS Safety Report 10904254 (Version 1)
Quarter: 2015Q1

REPORT INFORMATION
  Report Type: Spontaneous
  Country: DZ (occurrence: None)
  Receive Date: 20150306
  Receipt Date: 20150306
  Transmission Date: 20150721
  Serious: Yes (Other)
  Sender: FDA-Public Use
  Company Number: DZ-2015VAL000186

PATIENT
  Age: 69 Year
  Sex: Female

DRUGS (6)
  1. NOVOFORMIN (METFORMIN HYDROCHLORIDE) [Concomitant]
  2. AMAREL (GLIMEPIRIDE) [Concomitant]
     Active Substance: GLIMEPIRIDE
  3. EXFORGE [Suspect]
     Active Substance: AMLODIPINE BESYLATE\VALSARTAN
     Indication: HYPERTENSION
     Route: 048
     Dates: start: 20150219, end: 20150223
  4. LESCOL (FLUVASTATIN SODIUM) [Concomitant]
  5. LOPRESSOR [Suspect]
     Active Substance: METOPROLOL TARTRATE
     Indication: PRODUCT USED FOR UNKNOWN INDICATION
     Dates: start: 20150219, end: 20150223
  6. LANTUS [Concomitant]
     Active Substance: INSULIN GLARGINE

REACTIONS (4)
  - Anxiety [None]
  - Dyspnoea exertional [None]
  - Oedema peripheral [None]
  - Flushing [None]

NARRATIVE: CASE EVENT DATE: 20150221
